FAERS Safety Report 17985312 (Version 3)
Quarter: 2020Q3

REPORT INFORMATION
  Report Type: Spontaneous
  Country: US (occurrence: US)
  Receive Date: 20200706
  Receipt Date: 20200828
  Transmission Date: 20201103
  Serious: No
  Sender: FDA-Public Use
  Company Number: US-PFIZER INC-2020254572

PATIENT
  Age: 82 Year
  Sex: Female

DRUGS (1)
  1. RETACRIT [Suspect]
     Active Substance: EPOETIN ALFA-EPBX
     Indication: NEPHROGENIC ANAEMIA
     Dosage: 20000 IU(INJECT OF RETACRIT FREQUENCY: QOW)()

REACTIONS (2)
  - Renal disorder [Unknown]
  - Off label use [Unknown]
